FAERS Safety Report 4756825-6 (Version None)
Quarter: 2005Q3

REPORT INFORMATION
  Report Type: 
  Country: None (occurrence: None)
  Receive Date: 20050830
  Receipt Date: 20050818
  Transmission Date: 20060218
  Serious: Yes (Hospitalization, Other)
  Sender: FDA-Public Use
  Company Number: KR-JNJFOC-20050804719

PATIENT
  Age: 19 Year
  Sex: Female

DRUGS (6)
  1. ACETAMINOPHEN [Suspect]
  2. ACETAMINOPHEN [Suspect]
     Indication: DRUG USE FOR UNKNOWN INDICATION
  3. THYMOXAMINE [Concomitant]
  4. SERRATIOPEPTIDASE [Concomitant]
  5. OFLOXACIN [Concomitant]
  6. ALIBENDOL [Concomitant]

REACTIONS (1)
  - ERYTHEMA MULTIFORME [None]
